FAERS Safety Report 5669267-6 (Version None)
Quarter: 2008Q1

REPORT INFORMATION
  Report Type: 
  Country: None (occurrence: None)
  Receive Date: 20080317
  Receipt Date: 20080304
  Transmission Date: 20080703
  Serious: Yes (Hospitalization)
  Sender: FDA-Public Use
  Company Number: FR-ELI_LILLY_AND_COMPANY-FR200803000476

PATIENT
  Sex: Female

DRUGS (2)
  1. GEMCITABINE HCL [Suspect]
     Indication: BREAST CANCER
     Dosage: 1920 MG, OTHER
     Route: 042
     Dates: start: 20071012
  2. PACLITAXEL [Suspect]
     Indication: BREAST CANCER
     Dosage: 270 MG, OTHER
     Route: 042
     Dates: start: 20071012

REACTIONS (2)
  - SYNCOPE [None]
  - WOUND [None]
